FAERS Safety Report 7752437-0 (Version None)
Quarter: 2011Q3

REPORT INFORMATION
  Report Type: 
  Country: None (occurrence: None)
  Receive Date: 20110915
  Receipt Date: 20110913
  Transmission Date: 20111222
  Serious: Yes (Death, Hospitalization, Other)
  Sender: FDA-Public Use
  Company Number: PHFR2011GB03673

PATIENT
  Sex: Female

DRUGS (1)
  1. CLOZAPINE [Suspect]
     Indication: SCHIZOPHRENIA
     Route: 048
     Dates: start: 20110509

REACTIONS (7)
  - BACK PAIN [None]
  - URINARY TRACT INFECTION [None]
  - MALAISE [None]
  - CARDIAC ARREST [None]
  - LARGE INTESTINE PERFORATION [None]
  - INFECTIOUS PERITONITIS [None]
  - SEDATION [None]
